FAERS Safety Report 4422133-6 (Version None)
Quarter: 2004Q3

REPORT INFORMATION
  Report Type: 
  Country: None (occurrence: None)
  Receive Date: 20040805
  Receipt Date: 20040723
  Transmission Date: 20050211
  Serious: Yes (Other)
  Sender: FDA-Public Use
  Company Number: HQWYE479427JUL04

PATIENT
  Age: 71 Year
  Sex: Male
  Weight: 72.64 kg

DRUGS (6)
  1. AXID AR [Suspect]
     Indication: DYSPEPSIA
     Dosage: 1 TABLET, AS NEEDED, ORAL
     Route: 048
     Dates: start: 20000101, end: 20030101
  2. AVODART [Suspect]
     Indication: PROSTATE CANCER
     Dosage: 5 MG 1X PER 1 DAY, ORAL
     Route: 048
     Dates: start: 20030801, end: 20031201
  3. DILANTIN [Suspect]
     Indication: CONVULSION
     Dosage: 200 MG 2X PER 1 DAY, ORAL
     Route: 048
     Dates: start: 19840101, end: 20031201
  4. FLOMAX [Suspect]
     Indication: PROSTATIC DISORDER
     Dosage: 1 TABLET 1X PER 1 DAY,ORAL
     Route: 048
     Dates: start: 20010101, end: 20031201
  5. UNKNOWN (UNKNOWN) [Suspect]
     Indication: PROSTATE CANCER
     Dosage: 1 TABLET 1X PER 1 DAY, ORAL
     Route: 048
     Dates: start: 20031001, end: 20031101
  6. UNKNOWN (UNKNOWN) [Suspect]
     Indication: PROSTATE CANCER
     Dosage: 1 INJECTION, ONE TIME, INTRAVENOUS
     Route: 042
     Dates: start: 20030901, end: 20030901

REACTIONS (2)
  - FOOD INTERACTION [None]
  - HYPERSENSITIVITY [None]
